FAERS Safety Report 6884039-2 (Version None)
Quarter: 2010Q3

REPORT INFORMATION
  Report Type: 
  Country: None (occurrence: None)
  Receive Date: 20100729
  Receipt Date: 20100716
  Transmission Date: 20110219
  Serious: Yes (Hospitalization, Other)
  Sender: FDA-Public Use
  Company Number: PHHY2010JP15080

PATIENT
  Sex: Male
  Weight: 64 kg

DRUGS (3)
  1. ZOMETA [Suspect]
     Indication: METASTASES TO BONE
     Dosage: 5 MG
     Route: 042
     Dates: start: 20090115, end: 20090115
  2. ZOMETA [Suspect]
     Dosage: 4 MG
     Route: 042
     Dates: start: 20100226, end: 20100226
  3. TAXOTERE [Concomitant]
     Dosage: UNK
     Route: 042
     Dates: start: 20100226

REACTIONS (15)
  - ABASIA [None]
  - ARTHRALGIA [None]
  - BONE CALLUS EXCESSIVE [None]
  - BONE PAIN [None]
  - C-REACTIVE PROTEIN INCREASED [None]
  - HAEMOGLOBIN DECREASED [None]
  - LYMPHOCYTE COUNT DECREASED [None]
  - LYMPHOCYTE COUNT INCREASED [None]
  - MONOCYTE COUNT INCREASED [None]
  - MUSCULOSKELETAL PAIN [None]
  - NEUTROPHIL COUNT DECREASED [None]
  - NEUTROPHIL COUNT INCREASED [None]
  - OSTEOARTHRITIS [None]
  - PYREXIA [None]
  - WHITE BLOOD CELL COUNT INCREASED [None]
